FAERS Safety Report 15331414 (Version 1)
Quarter: 2018Q4

REPORT INFORMATION
  Report Type: Spontaneous
  Country: DE (occurrence: DE)
  Receive Date: 20180829
  Receipt Date: 20180829
  Transmission Date: 20190204
  Serious: Yes (Death, Life-Threatening)
  Sender: FDA-Public Use
  Company Number: DE-TEVA-2018-DE-949101

PATIENT
  Age: 92 Year
  Sex: Female

DRUGS (22)
  1. NOVAMINSULFON 500 MG [Suspect]
     Active Substance: METAMIZOLE
     Indication: ANALGESIC THERAPY
     Dosage: 2 GRAM DAILY; 500 MG -} 1-1-1-1
     Route: 042
     Dates: start: 20180121, end: 20180124
  2. MOVICOL BTL. [Concomitant]
     Dosage: 2 DOSAGE FORMS DAILY; 1-0-1-0
     Route: 048
  3. LEVEMIR [Concomitant]
     Active Substance: INSULIN DETEMIR
     Dosage: ANTIDOTA -} IE NACH BEDARF
     Route: 058
  4. PIPAMPERON 20 MG [Suspect]
     Active Substance: PIPAMPERONE HYDROCHLORIDE
     Dosage: 40 MILLIGRAM DAILY; 1-0-1-0
     Route: 048
     Dates: start: 20180119
  5. PIPAMPERON 20 MG [Suspect]
     Active Substance: PIPAMPERONE HYDROCHLORIDE
     Route: 048
     Dates: start: 20180123, end: 20180124
  6. DIGITOXIN 0,07 MG [Concomitant]
     Dosage: .07 MILLIGRAM DAILY; 1-0-0-0
     Route: 048
  7. HUMALOG [Concomitant]
     Active Substance: INSULIN LISPRO
     Dosage: INSULIN NACH SCHEMA
  8. APIXABAN 5 MG [Concomitant]
     Active Substance: APIXABAN
     Dosage: 10 MILLIGRAM DAILY; 1-0-1-0
     Route: 048
  9. CLEXANE [Concomitant]
     Active Substance: ENOXAPARIN SODIUM
     Indication: ANTICOAGULANT THERAPY
     Dosage: .8 ML DAILY;
     Route: 058
     Dates: start: 20180118, end: 20180124
  10. STEROFUNDIN [Concomitant]
     Active Substance: CALCIUM CHLORIDE\MAGNESIUM CHLORIDE\POTASSIUM CHLORIDE\SODIUM ACETATE\SODIUM CHLORIDE
     Dosage: 1500 MILLIGRAM DAILY;
     Route: 042
     Dates: start: 20180118, end: 20180124
  11. L-THYROXIN 150 MG [Concomitant]
     Dosage: 150 MILLIGRAM DAILY; 1-0-0-0
     Route: 048
  12. TORASEMID 10 MG [Concomitant]
     Dosage: 20 MILLIGRAM DAILY; 1-1-0-0
     Route: 048
  13. SPIRONOLACTONE 25 MG [Concomitant]
     Active Substance: SPIRONOLACTONE
     Dosage: 25 MILLIGRAM DAILY; 1-0-0-0
     Route: 048
  14. SIMVASTATIN 20 MG [Concomitant]
     Active Substance: SIMVASTATIN
     Dosage: 20 MILLIGRAM DAILY; 0-0-1-0
     Route: 048
  15. RISPERIDON 0,5 MG [Suspect]
     Active Substance: RISPERIDONE
     Route: 048
     Dates: start: 20180123, end: 20180124
  16. CARVEDILOL 6,25 MG COMPRIMIDO [Concomitant]
     Active Substance: CARVEDILOL
     Dosage: 2 DOSAGE FORMS DAILY; 1-0-1-0
     Route: 048
  17. IDEOS KAUTABLETTE STK. [Concomitant]
     Dosage: 1 DOSAGE FORMS DAILY; 1-0-0-0
     Route: 048
  18. ENALAPRIL 5 MG [Concomitant]
     Dosage: 5 MILLIGRAM DAILY; 1-0-0-0
     Route: 048
  19. RISPERIDON 0,5 MG [Suspect]
     Active Substance: RISPERIDONE
     Dosage: .5 MILLIGRAM DAILY;
     Route: 048
     Dates: start: 20180122
  20. RISPERIDON 0,5 MG [Suspect]
     Active Substance: RISPERIDONE
     Dosage: 1-0-0-0
     Route: 048
     Dates: start: 20180119
  21. PIPAMPERON 20 MG [Suspect]
     Active Substance: PIPAMPERONE HYDROCHLORIDE
     Route: 048
     Dates: start: 20180122
  22. ERGENYL 800 MG [Suspect]
     Active Substance: VALPROIC ACID
     Dosage: 1600 MILLIGRAM DAILY;
     Route: 042
     Dates: start: 20180119, end: 20180124

REACTIONS (1)
  - Death [Fatal]

NARRATIVE: CASE EVENT DATE: 20180125
